FAERS Safety Report 7693974-7 (Version None)
Quarter: 2011Q3

REPORT INFORMATION
  Report Type: 
  Country: None (occurrence: None)
  Receive Date: 20110819
  Receipt Date: 20110809
  Transmission Date: 20111222
  Serious: Yes (Hospitalization, Other)
  Sender: FDA-Public Use
  Company Number: DK-SANOFI-AVENTIS-2011SA048555

PATIENT
  Age: 46 Year
  Sex: Female

DRUGS (8)
  1. SPIROCORT [Concomitant]
     Indication: ASTHMA
     Route: 065
  2. SIMVASTATIN [Concomitant]
     Route: 065
  3. MULTAQ [Suspect]
     Indication: ATRIAL FIBRILLATION
     Route: 048
     Dates: start: 20110301, end: 20110728
  4. BRICANYL [Concomitant]
     Indication: ASTHMA
     Route: 065
  5. COZAAR [Concomitant]
     Indication: HYPERTENSION
     Route: 065
  6. CITALOPRAM HYDROBROMIDE [Concomitant]
     Indication: DEPRESSION
     Route: 065
  7. WARFARIN SODIUM [Concomitant]
     Indication: THROMBOSIS PROPHYLAXIS
     Route: 065
  8. METOPROLOL SUCCINATE [Concomitant]
     Indication: ATRIAL FIBRILLATION
     Route: 065

REACTIONS (2)
  - HYPERTHYROIDISM [None]
  - EXTRASYSTOLES [None]
